FAERS Safety Report 4498508-6 (Version None)
Quarter: 2004Q4

REPORT INFORMATION
  Report Type: 
  Country: None (occurrence: None)
  Receive Date: 20041105
  Receipt Date: 20041027
  Transmission Date: 20050328
  Serious: Yes (Death)
  Sender: FDA-Public Use
  Company Number: 163-20785-04020261

PATIENT
  Age: 33 Year
  Sex: Female

DRUGS (1)
  1. THALOMID [Suspect]
     Indication: MOUTH ULCERATION
     Dosage: 200 MG, DAILY, ORAL
     Route: 048
     Dates: start: 20020817, end: 20021219

REACTIONS (3)
  - PNEUMONIA [None]
  - RESPIRATORY FAILURE [None]
  - THROMBOCYTHAEMIA [None]
